FAERS Safety Report 5808812-4 (Version None)
Quarter: 2008Q3

REPORT INFORMATION
  Report Type: 
  Country: None (occurrence: None)
  Receive Date: 20080714
  Receipt Date: 20080703
  Transmission Date: 20090109
  Serious: Yes (Hospitalization)
  Sender: FDA-Public Use
  Company Number: B0521471B

PATIENT
  Age: 75 Year
  Sex: Female
  Weight: 60 kg

DRUGS (2)
  1. TYVERB [Suspect]
     Dosage: 1250MG PER DAY
     Route: 048
     Dates: start: 20070315
  2. XELODA [Suspect]
     Dosage: 2000MG PER DAY
     Route: 048

REACTIONS (3)
  - DIARRHOEA [None]
  - INFECTION [None]
  - PSEUDOMEMBRANOUS COLITIS [None]
